FAERS Safety Report 20995542 (Version 1)
Quarter: 2022Q2

REPORT INFORMATION
  Report Type: Report from Study
  Country: US (occurrence: None)
  Receive Date: 20220623
  Receipt Date: 20220623
  Transmission Date: 20220721
  Serious: Yes (Hospitalization, Other)
  Sender: FDA-Public Use
  Company Number: 2022A225891

PATIENT
  Sex: Male

DRUGS (3)
  1. TAGRISSO [Suspect]
     Active Substance: OSIMERTINIB
     Indication: Lung carcinoma cell type unspecified stage 0
     Route: 048
     Dates: start: 20220526
  2. LEVETIRACETAM [Concomitant]
     Active Substance: LEVETIRACETAM
  3. ZOMETA INFUSIONS [Concomitant]

REACTIONS (3)
  - Bone disorder [Unknown]
  - Seizure [Unknown]
  - Pruritus [Unknown]
